FAERS Safety Report 9512933 (Version 1)
Quarter: 2013Q1

REPORT INFORMATION
  Report Type: Spontaneous
  Country: US (occurrence: None)
  Receive Date: 20130305
  Receipt Date: 20130305
  Transmission Date: 20140127
  Serious: Yes (Other)
  Sender: FDA-Public Use
  Company Number: 163-21880-12100958

PATIENT
  Age: 71 Year
  Sex: Female
  Weight: 54.43 kg

DRUGS (12)
  1. REVLIMID (LENALIDOMIDE) (25 MILLIGRAM, CAPSULES) [Suspect]
     Indication: PLASMA CELL MYELOMA
     Dosage: 21 IN 28 D
     Route: 048
     Dates: start: 201202
  2. LISINOPRIL (LISINOPRIL) (UNKNOWN) [Concomitant]
  3. DEXAMETHASONE (DEXAMETHASONE) (UNKNOWN) [Concomitant]
  4. METFORMIN (METFORMIN) (UNKNOWN) [Concomitant]
  5. POTASSIUM CHLORIDE (POTASSIUM CHLORIDE) (UNKNOWN) [Concomitant]
  6. ASPIRIN (ACETYLSALICYLIC ACID) (UNKNOWN) (ACETYLSALICYLIC ACID) [Concomitant]
  7. LORATADINE (LORATADINE) (UNKNOWN) [Concomitant]
  8. NASAL SPRAY (NASAL PREPARATIONS) (SPRAY (NOT INHALATION)) [Concomitant]
  9. PANTOPRAZOLE [Concomitant]
  10. ZOLEDRONIC ACID (ZOLEDRONIC ACID) (UNKNOWN) [Concomitant]
  11. ATORVASTATIN (ATORVASTATIN) UNKNOWN) [Concomitant]
  12. HERPECIN (HERPECIN-L) (UNKNOWN) [Concomitant]

REACTIONS (8)
  - Multiple allergies [None]
  - Cough [None]
  - Nasopharyngitis [None]
  - Lip dry [None]
  - Rash pustular [None]
  - Neuropathy peripheral [None]
  - Mass [None]
  - Sensation of heaviness [None]
